FAERS Safety Report 7983115-0 (Version None)
Quarter: 2011Q4

REPORT INFORMATION
  Report Type: 
  Country: None (occurrence: None)
  Receive Date: 20111215
  Receipt Date: 20111202
  Transmission Date: 20120403
  Serious: Yes (Other)
  Sender: FDA-Public Use
  Company Number: AU-MYLANLABS-2011S1025147

PATIENT
  Age: 58 Year
  Sex: Male

DRUGS (1)
  1. NITROGLYCERIN [Suspect]
     Indication: ANGINA UNSTABLE

REACTIONS (2)
  - TACHYCARDIA [None]
  - CHEST PAIN [None]
